FAERS Safety Report 8114318-2 (Version None)
Quarter: 2012Q1

REPORT INFORMATION
  Report Type: 
  Country: None (occurrence: None)
  Receive Date: 20120206
  Receipt Date: 20120126
  Transmission Date: 20120608
  Serious: No
  Sender: FDA-Public Use
  Company Number: US-BIOGENIDEC-2011BI018504

PATIENT
  Sex: Female

DRUGS (1)
  1. TYSABRI [Suspect]
     Indication: MULTIPLE SCLEROSIS
     Route: 042
     Dates: start: 20110317

REACTIONS (13)
  - FEELING ABNORMAL [None]
  - NAUSEA [None]
  - MULTIPLE SCLEROSIS [None]
  - CLUMSINESS [None]
  - PAIN IN EXTREMITY [None]
  - MUSCULAR WEAKNESS [None]
  - DRUG INEFFECTIVE [None]
  - MOBILITY DECREASED [None]
  - SENSATION OF HEAVINESS [None]
  - HEADACHE [None]
  - BALANCE DISORDER [None]
  - MALAISE [None]
  - FATIGUE [None]
